FAERS Safety Report 5375590-5 (Version None)
Quarter: 2007Q2

REPORT INFORMATION
  Report Type: 
  Country: None (occurrence: None)
  Receive Date: 20070627
  Receipt Date: 20070620
  Transmission Date: 20071010
  Serious: Yes (Other)
  Sender: FDA-Public Use
  Company Number: 2007SP012373

PATIENT
  Sex: Male

DRUGS (2)
  1. CELESTAMINE TAB [Suspect]
     Indication: DRUG USE FOR UNKNOWN INDICATION
     Dosage: SEE IMAGE
     Route: 048
     Dates: start: 19940501, end: 20000501
  2. CELESTAMINE TAB [Suspect]
     Indication: DRUG USE FOR UNKNOWN INDICATION
     Dosage: SEE IMAGE
     Route: 048
     Dates: start: 20000501, end: 20001001

REACTIONS (3)
  - CEREBRAL HAEMORRHAGE [None]
  - DIABETES MELLITUS [None]
  - HYPERLIPIDAEMIA [None]
